FAERS Safety Report 4400616-2 (Version None)
Quarter: 2004Q3

REPORT INFORMATION
  Report Type: 
  Country: None (occurrence: None)
  Receive Date: 20040715
  Receipt Date: 20040715
  Transmission Date: 20050211
  Serious: Yes (Life-Threatening, Hospitalization)
  Sender: FDA-Public Use
  Company Number: None

PATIENT
  Age: 86 Year
  Sex: Female
  Weight: 61.2356 kg

DRUGS (14)
  1. BOTOX PURIFIED NEUROTOXIN COMPLEX [Suspect]
     Indication: BREAST CANCER METASTATIC
     Dosage: Q 6-8 WKS IM
     Route: 030
     Dates: start: 20040515
  2. BOTOX PURIFIED NEUROTOXIN COMPLEX [Suspect]
     Indication: CARCINOMA
     Dosage: Q 6-8 WKS IM
     Route: 030
     Dates: start: 20040515
  3. BOTOX PURIFIED NEUROTOXIN COMPLEX [Suspect]
     Indication: FACIAL PALSY
     Dosage: Q 6-8 WKS IM
     Route: 030
     Dates: start: 20040515
  4. BOTOX PURIFIED NEUROTOXIN COMPLEX [Suspect]
     Indication: MASTOID DISORDER
     Dosage: Q 6-8 WKS IM
     Route: 030
     Dates: start: 20040515
  5. BOTOX PURIFIED NEUROTOXIN COMPLEX [Suspect]
     Indication: BREAST CANCER METASTATIC
     Dosage: Q 6-8 WKS IM
     Route: 030
     Dates: start: 20040708
  6. BOTOX PURIFIED NEUROTOXIN COMPLEX [Suspect]
     Indication: CARCINOMA
     Dosage: Q 6-8 WKS IM
     Route: 030
     Dates: start: 20040708
  7. BOTOX PURIFIED NEUROTOXIN COMPLEX [Suspect]
     Indication: FACIAL PALSY
     Dosage: Q 6-8 WKS IM
     Route: 030
     Dates: start: 20040708
  8. BOTOX PURIFIED NEUROTOXIN COMPLEX [Suspect]
     Indication: MASTOID DISORDER
     Dosage: Q 6-8 WKS IM
     Route: 030
     Dates: start: 20040708
  9. ARIMIDEX [Concomitant]
  10. SYNTHROID [Concomitant]
  11. MECLIZINE [Concomitant]
  12. ATENOLOL [Concomitant]
  13. ZANTAC [Concomitant]
  14. OXYCODONE HCL [Concomitant]

REACTIONS (10)
  - CHOKING [None]
  - COUGH [None]
  - DYSPHAGIA [None]
  - DYSPHONIA [None]
  - HOARSENESS [None]
  - HYPERVENTILATION [None]
  - INCREASED UPPER AIRWAY SECRETION [None]
  - OROPHARYNGEAL SWELLING [None]
  - STRIDOR [None]
  - SWELLING FACE [None]
